FAERS Safety Report 10171897 (Version 1)
Quarter: 2014Q2

REPORT INFORMATION
  Report Type: Spontaneous
  Country: US (occurrence: US)
  Receive Date: 20140514
  Receipt Date: 20140514
  Transmission Date: 20141212
  Serious: No
  Sender: FDA-Public Use
  Company Number: US-009507513-1405USA004826

PATIENT
  Sex: 0

DRUGS (3)
  1. JANUVIA [Suspect]
     Dosage: 100 MG, ONCE PER DAY
     Route: 048
  2. METFORMIN [Suspect]
     Dosage: UNK
  3. GLIPIZIDE [Suspect]
     Dosage: UNK

REACTIONS (2)
  - Lipase increased [Unknown]
  - Abdominal pain [Unknown]
